FAERS Safety Report 19974158 (Version 2)
Quarter: 2021Q4

REPORT INFORMATION
  Report Type: Spontaneous
  Country: JP (occurrence: JP)
  Receive Date: 20211020
  Receipt Date: 20211207
  Transmission Date: 20220304
  Serious: Yes (Life-Threatening, Hospitalization, Other)
  Sender: FDA-Public Use
  Company Number: JP-PFIZER INC-202101393590

PATIENT
  Age: 73 Year
  Sex: Female
  Weight: 61 kg

DRUGS (7)
  1. XELJANZ [Suspect]
     Active Substance: TOFACITINIB CITRATE
     Indication: Rheumatoid arthritis
     Dosage: 5 MG, 1X/DAY
     Route: 048
     Dates: start: 20200326, end: 20210816
  2. PROGRAF [Concomitant]
     Active Substance: TACROLIMUS
     Indication: Rheumatoid arthritis
     Dosage: 0.5 MG, 1X/DAY
     Route: 048
     Dates: end: 20190919
  3. PROGRAF [Concomitant]
     Active Substance: TACROLIMUS
     Dosage: 1.5 MG, 1X/DAY
     Route: 048
     Dates: start: 20190920, end: 20200624
  4. PROGRAF [Concomitant]
     Active Substance: TACROLIMUS
     Dosage: 1 MG, 1X/DAY
     Route: 048
     Dates: start: 20210625, end: 20210816
  5. ROSUVASTATIN CALCIUM [Concomitant]
     Active Substance: ROSUVASTATIN CALCIUM
     Indication: Hyperlipidaemia
     Dosage: 2.5 MG, 1X/DAY
     Route: 048
  6. ALFAROL [Concomitant]
     Active Substance: ALFACALCIDOL
     Indication: Osteoporosis
     Dosage: 0.25 MG, 1X/DAY
     Route: 048
  7. BONALON [Concomitant]
     Active Substance: ALENDRONATE SODIUM
     Indication: Osteoporosis
     Dosage: 35 MG, WEEKLY
     Route: 048

REACTIONS (2)
  - Colon cancer [Not Recovered/Not Resolved]
  - Nasopharyngitis [Not Recovered/Not Resolved]

NARRATIVE: CASE EVENT DATE: 20210731
